FAERS Safety Report 6307955-9 (Version None)
Quarter: 2009Q3

REPORT INFORMATION
  Report Type: 
  Country: None (occurrence: None)
  Receive Date: 20090813
  Receipt Date: 20090806
  Transmission Date: 20100115
  Serious: No
  Sender: FDA-Public Use
  Company Number: BR-ASTRAZENECA-2009UW21908

PATIENT
  Age: 32 Year

DRUGS (2)
  1. SEROQUEL [Suspect]
     Indication: SCHIZOPHRENIA
     Route: 048
     Dates: start: 20080101, end: 20090701
  2. CLONAZEPAM [Concomitant]
     Route: 048

REACTIONS (2)
  - LEUKOPENIA [None]
  - WEIGHT DECREASED [None]
